FAERS Safety Report 6933799-0 (Version None)
Quarter: 2010Q3

REPORT INFORMATION
  Report Type: 
  Country: None (occurrence: None)
  Receive Date: 20100820
  Receipt Date: 20100814
  Transmission Date: 20110219
  Serious: Yes (Hospitalization)
  Sender: FDA-Public Use
  Company Number: US-PFIZER INC-2007085585

PATIENT
  Sex: Male
  Weight: 63.6 kg

DRUGS (9)
  1. ANIDULAFUNGIN [Suspect]
     Indication: SYSTEMIC CANDIDA
     Dosage: 100 MG, 1X/DAY
     Route: 042
     Dates: start: 20070926, end: 20070930
  2. FLUCONAZOLE [Suspect]
     Indication: SYSTEMIC CANDIDA
     Dosage: 400 MG, 1X/DAY
     Route: 048
     Dates: start: 20071001, end: 20071012
  3. HYDROCHLOROTHIAZIDE [Suspect]
     Dosage: UNK
     Route: 048
     Dates: start: 20070927, end: 20071012
  4. NIFEDIPINE [Suspect]
     Route: 048
     Dates: start: 19950720, end: 20071012
  5. LISINOPRIL [Suspect]
     Dosage: UNK
     Route: 048
     Dates: start: 20070927, end: 20071012
  6. METHADONE HCL [Concomitant]
     Route: 048
     Dates: start: 20070923
  7. FOLIC ACID [Concomitant]
     Route: 048
     Dates: start: 19950721
  8. THIAMINE HCL [Concomitant]
     Route: 048
     Dates: start: 19950721
  9. ZOLOFT [Concomitant]
     Route: 048
     Dates: start: 20070923

REACTIONS (3)
  - DEHYDRATION [None]
  - HYPOTENSION [None]
  - RENAL FAILURE ACUTE [None]
